FAERS Safety Report 7228221-3 (Version None)
Quarter: 2011Q1

REPORT INFORMATION
  Report Type: 
  Country: None (occurrence: None)
  Receive Date: 20110112
  Receipt Date: 20110112
  Transmission Date: 20110831
  Serious: Yes (Other)
  Sender: FDA-Public Use
  Company Number: None

PATIENT
  Age: 63 Year
  Sex: Female
  Weight: 80.7403 kg

DRUGS (8)
  1. ACETAMINOPHEN [Concomitant]
  2. ACTOS [Concomitant]
  3. ALPRAZOMAN [Concomitant]
  4. IBUPROFEN [Concomitant]
  5. ACTONEL [Suspect]
     Indication: OSTEOPOROSIS
     Dosage: 1 WEEKLY PO ONE DOSE
     Route: 048
     Dates: start: 20110109
  6. VERAPAMIL [Concomitant]
  7. METFORMIN HCL [Concomitant]
  8. LYRICA [Concomitant]

REACTIONS (5)
  - ARTHRALGIA [None]
  - MYALGIA [None]
  - CONDITION AGGRAVATED [None]
  - PAIN [None]
  - MUSCULOSKELETAL PAIN [None]
